FAERS Safety Report 10804231 (Version 1)
Quarter: 2015Q1

REPORT INFORMATION
  Report Type: Report from Study
  Country: US (occurrence: US)
  Receive Date: 20150217
  Receipt Date: 20150217
  Transmission Date: 20150721
  Serious: No
  Sender: FDA-Public Use
  Company Number: US-ABBVIE-14K-163-1254313-00

PATIENT
  Age: 48 Year
  Sex: Female

DRUGS (3)
  1. NETTIE POT [Concomitant]
     Indication: SINUS DISORDER
  2. HUMIRA [Suspect]
     Active Substance: ADALIMUMAB
     Indication: SARCOIDOSIS
     Dosage: PARTIAL INJECTION
     Dates: start: 20140603, end: 20140603
  3. HUMIRA [Suspect]
     Active Substance: ADALIMUMAB
     Dates: start: 20140611

REACTIONS (6)
  - Underdose [Unknown]
  - Rhinorrhoea [Not Recovered/Not Resolved]
  - Productive cough [Not Recovered/Not Resolved]
  - Hypertension [Unknown]
  - Headache [Not Recovered/Not Resolved]
  - Throat irritation [Not Recovered/Not Resolved]

NARRATIVE: CASE EVENT DATE: 201406
